FAERS Safety Report 4601889-3 (Version None)
Quarter: 2005Q2

REPORT INFORMATION
  Report Type: 
  Country: None (occurrence: None)
  Receive Date: 20050215
  Receipt Date: 20041221
  Transmission Date: 20051028
  Serious: Yes (Other)
  Sender: FDA-Public Use
  Company Number: 390197

PATIENT
  Age: 59 Year
  Sex: Female

DRUGS (2)
  1. PEGASYS [Suspect]
     Dosage: SUBCUTANEOUS
     Route: 058
     Dates: start: 20041118
  2. COPEGUS [Suspect]
     Dosage: ORAL
     Route: 048
     Dates: start: 20041118

REACTIONS (4)
  - ANAEMIA [None]
  - BACK PAIN [None]
  - NEUTROPENIA [None]
  - SHOULDER PAIN [None]
